FAERS Safety Report 4525170-6 (Version None)
Quarter: 2004Q4

REPORT INFORMATION
  Report Type: 
  Country: None (occurrence: None)
  Receive Date: 20041116
  Receipt Date: 20040723
  Transmission Date: 20050328
  Serious: No
  Sender: FDA-Public Use
  Company Number: S04-USA-04898-01

PATIENT
  Age: 80 Year
  Sex: Male

DRUGS (6)
  1. NAMENDA [Suspect]
     Indication: COGNITIVE DISORDER
     Dosage: 5 MG QD PO
     Route: 048
     Dates: start: 20040618, end: 20040624
  2. NAMENDA [Suspect]
     Indication: COGNITIVE DISORDER
     Dosage: 5 MG BID PO
     Route: 048
     Dates: start: 20040625, end: 20040801
  3. NAMENDA [Suspect]
     Indication: COGNITIVE DISORDER
     Dosage: 10 MG QAM PO
     Route: 048
     Dates: start: 20040702, end: 20040708
  4. NAMENDA [Suspect]
     Indication: COGNITIVE DISORDER
     Dosage: 5 MG QHS PO
     Route: 048
     Dates: start: 20040702, end: 20040708
  5. NAMENDA [Suspect]
     Indication: COGNITIVE DISORDER
     Dosage: 10 MG BID PO
     Route: 048
     Dates: start: 20040709
  6. ARICEPT (DONNEPEZIL HDYROCHLORIDE) [Concomitant]

REACTIONS (1)
  - HYPERSOMNIA [None]
